FAERS Safety Report 5136007-9 (Version None)
Quarter: 2006Q4

REPORT INFORMATION
  Report Type: 
  Country: None (occurrence: None)
  Receive Date: 20061020
  Receipt Date: 20061011
  Transmission Date: 20070319
  Serious: Yes (Hospitalization, Other)
  Sender: FDA-Public Use
  Company Number: 2006EN000106

PATIENT
  Age: 7 Month
  Sex: Male

DRUGS (10)
  1. ADAGEN [Suspect]
     Indication: COMBINED IMMUNODEFICIENCY
     Dosage: SEE IMAGE
     Route: 030
     Dates: start: 20050101, end: 20050101
  2. ADAGEN [Suspect]
     Indication: COMBINED IMMUNODEFICIENCY
     Dosage: SEE IMAGE
     Route: 030
     Dates: start: 20050321, end: 20050101
  3. ADAGEN [Suspect]
     Indication: COMBINED IMMUNODEFICIENCY
     Dosage: SEE IMAGE
     Route: 030
     Dates: start: 20050114, end: 20050320
  4. AMPHOTERICIN B [Concomitant]
  5. IMMUNOGLOBULINS [Concomitant]
  6. ACYCLOVIR [Concomitant]
  7. COTRIMOXAZOLE [Concomitant]
  8. PHENOBARBITAL TAB [Concomitant]
  9. GANCICLOVIR [Concomitant]
  10. FOSCARNET [Concomitant]

REACTIONS (2)
  - ANAEMIA HAEMOLYTIC AUTOIMMUNE [None]
  - EPILEPSY [None]
